FAERS Safety Report 9723072 (Version 1)
Quarter: 2013Q4

REPORT INFORMATION
  Report Type: Spontaneous
  Country: US (occurrence: None)
  Receive Date: 20131127
  Receipt Date: 20131127
  Transmission Date: 20140711
  Serious: Yes (Hospitalization)
  Sender: FDA-Public Use
  Company Number: None

PATIENT
  Age: 68 Year
  Sex: Male
  Weight: 113 kg

DRUGS (2)
  1. METFORMIN [Suspect]
     Indication: DIABETES MELLITUS
     Dosage: TWO BID ORAL
  2. INVOKANA [Suspect]
     Indication: DIABETES MELLITUS
     Dosage: ONE QD ORAL

REACTIONS (9)
  - Renal failure acute [None]
  - Bradycardia [None]
  - Metabolic acidosis [None]
  - Shock [None]
  - Vomiting [None]
  - Diarrhoea [None]
  - Gastroenteritis [None]
  - Pneumonia staphylococcal [None]
  - Cardio-respiratory arrest [None]
